FAERS Safety Report 7371399-1 (Version None)
Quarter: 2011Q1

REPORT INFORMATION
  Report Type: 
  Country: None (occurrence: None)
  Receive Date: 20110324
  Receipt Date: 20110318
  Transmission Date: 20110831
  Serious: Yes (Life-Threatening)
  Sender: FDA-Public Use
  Company Number: JP-ASTRAZENECA-2011SE04579

PATIENT
  Age: 78 Year
  Sex: Female

DRUGS (5)
  1. BUFFERIN [Concomitant]
     Route: 048
  2. CRESTOR [Suspect]
     Indication: DYSLIPIDAEMIA
     Route: 048
     Dates: start: 20081212, end: 20101106
  3. DIOVAN [Concomitant]
     Route: 048
  4. ANTIDEPRESSANT [Concomitant]
     Dosage: DOSE UNKNOWN
     Route: 065
     Dates: start: 20101201
  5. SEROQUEL [Suspect]
     Dosage: DOSE UNKNOWN
     Route: 048

REACTIONS (2)
  - RENAL FAILURE ACUTE [None]
  - RHABDOMYOLYSIS [None]
